FAERS Safety Report 19231933 (Version 2)
Quarter: 2021Q2

REPORT INFORMATION
  Report Type: Report from Study
  Country: CA (occurrence: CA)
  Receive Date: 20210507
  Receipt Date: 20210512
  Transmission Date: 20210717
  Serious: Yes (Hospitalization, Other)
  Sender: FDA-Public Use
  Company Number: CA-JNJFOC-20201235485

PATIENT
  Age: 5 Decade
  Sex: Male
  Weight: 114.5 kg

DRUGS (2)
  1. REMICADE [Suspect]
     Active Substance: INFLIXIMAB
     Indication: CROHN^S DISEASE
     Route: 042
     Dates: start: 20190807
  2. REMICADE [Suspect]
     Active Substance: INFLIXIMAB
     Route: 042

REACTIONS (10)
  - Constipation [Unknown]
  - Abdominal distension [Unknown]
  - Therapeutic product effect decreased [Unknown]
  - Abdominal pain [Recovering/Resolving]
  - Oropharyngeal pain [Recovered/Resolved]
  - Internal haemorrhage [Unknown]
  - Intestinal resection [Unknown]
  - Haemoglobin decreased [Unknown]
  - Pneumothorax [Unknown]
  - Obesity [Unknown]

NARRATIVE: CASE EVENT DATE: 20201215
